FAERS Safety Report 4530446-2 (Version None)
Quarter: 2004Q4

REPORT INFORMATION
  Report Type: 
  Country: None (occurrence: None)
  Receive Date: 20041216
  Receipt Date: 20041216
  Transmission Date: 20050328
  Serious: Yes (Hospitalization)
  Sender: FDA-Public Use
  Company Number: None

PATIENT
  Sex: Female

DRUGS (3)
  1. CARBOPLATIN [Suspect]
     Indication: LUNG NEOPLASM MALIGNANT
     Dosage: AUC 5     D1 + 8 Q 21 D   INTRAVENOUS
     Route: 042
     Dates: start: 20040930, end: 20041129
  2. IRINOTECAN [Suspect]
     Indication: LUNG NEOPLASM MALIGNANT
     Dosage: 50 MG/M2     D1 + 8 Q 21 D    INTRAVENOU
     Route: 042
     Dates: start: 20040930, end: 20041206
  3. THALIDOMIDE [Concomitant]

REACTIONS (8)
  - ASTHENIA [None]
  - CHILLS [None]
  - DEHYDRATION [None]
  - DIARRHOEA [None]
  - NAUSEA [None]
  - PANCYTOPENIA [None]
  - PYREXIA [None]
  - VOMITING [None]
